FAERS Safety Report 22181716 (Version 1)
Quarter: 2023Q2

REPORT INFORMATION
  Report Type: Spontaneous
  Country: US (occurrence: None)
  Receive Date: 20230405
  Receipt Date: 20230405
  Transmission Date: 20230721
  Serious: Yes (Hospitalization)
  Sender: FDA-Public Use
  Company Number: None

PATIENT
  Age: 35 Year
  Sex: Male
  Weight: 113.85 kg

DRUGS (16)
  1. SPRYCEL [Suspect]
     Active Substance: DASATINIB
     Indication: Chronic myeloid leukaemia
     Dosage: FREQUENCY : DAILY;?
     Route: 048
     Dates: start: 202202
  2. ALPRAZOLAM [Concomitant]
     Active Substance: ALPRAZOLAM
  3. AMAZING GRASS SUPERFOOD [Concomitant]
  4. BLACK ELDERBERRY [Concomitant]
  5. DILAUDED [Concomitant]
  6. DOCUSATE [Concomitant]
     Active Substance: DOCUSATE
  7. GABAPENTIN [Concomitant]
     Active Substance: GABAPENTIN
  8. GARCINA CAMBOGIA-CHROMIUM [Concomitant]
  9. NORCO [Concomitant]
     Active Substance: ACETAMINOPHEN\HYDROCODONE BITARTRATE
  10. METHYLPREDNISOLONE [Concomitant]
     Active Substance: METHYLPREDNISOLONE
  11. VITAMINS [Concomitant]
     Active Substance: VITAMINS
  12. OXYBUTYNIN [Concomitant]
     Active Substance: OXYBUTYNIN
  13. OXYCODONE [Concomitant]
     Active Substance: OXYCODONE
  14. PROCHLORPERAZINE [Concomitant]
     Active Substance: PROCHLORPERAZINE
  15. HERBALS\SPIRULINA [Concomitant]
     Active Substance: HERBALS\SPIRULINA
  16. TIZANIDINE [Concomitant]
     Active Substance: TIZANIDINE

REACTIONS (1)
  - Spinal operation [None]
